FAERS Safety Report 14415009 (Version 1)
Quarter: 2018Q1

REPORT INFORMATION
  Report Type: Spontaneous
  Country: US (occurrence: US)
  Receive Date: 20180118
  Receipt Date: 20180118
  Transmission Date: 20180509
  Serious: Yes (Hospitalization)
  Sender: FDA-Public Use
  Company Number: None

PATIENT
  Age: 41 Year
  Sex: Male
  Weight: 108 kg

DRUGS (3)
  1. 5-FLUOROURACIL (5-FU) [Suspect]
     Active Substance: FLUOROURACIL
     Dates: end: 20171211
  2. LEUCOVORIN CALCIUM. [Suspect]
     Active Substance: LEUCOVORIN CALCIUM
     Dates: end: 20171211
  3. ELOXATIN [Suspect]
     Active Substance: OXALIPLATIN
     Dates: end: 20171211

REACTIONS (10)
  - Anorectal infection [None]
  - Therapy cessation [None]
  - Headache [None]
  - Feeling abnormal [None]
  - Tachycardia [None]
  - Leukocytosis [None]
  - Rectal abscess [None]
  - Therapy change [None]
  - Nausea [None]
  - Hypotension [None]

NARRATIVE: CASE EVENT DATE: 20180108
